FAERS Safety Report 16842829 (Version 2)
Quarter: 2019Q4

REPORT INFORMATION
  Report Type: Report from Study
  Country: US (occurrence: US)
  Receive Date: 20190924
  Receipt Date: 20191217
  Transmission Date: 20200122
  Serious: Yes (Death, Other)
  Sender: FDA-Public Use
  Company Number: US-SA-2019SA159555

PATIENT
  Age: 60 Year
  Sex: Male
  Weight: 124.7 kg

DRUGS (6)
  1. ZESTRIL [Concomitant]
     Active Substance: LISINOPRIL
     Dosage: 20 MG, QD
  2. TOPAMAX [Concomitant]
     Active Substance: TOPIRAMATE
     Dosage: 50 MG, BID
     Route: 048
  3. PRINIVIL [Concomitant]
     Active Substance: LISINOPRIL
     Dosage: 20 MG, QD
     Route: 048
  4. TERIFLUNOMIDE. [Suspect]
     Active Substance: TERIFLUNOMIDE
     Dosage: 14 MG, QD
     Route: 048
     Dates: start: 20181006
  5. SYMMETREL [Concomitant]
     Active Substance: AMANTADINE HYDROCHLORIDE
     Dosage: 100 MG, BID
     Route: 048
  6. TERIFLUNOMIDE. [Suspect]
     Active Substance: TERIFLUNOMIDE
     Indication: MULTIPLE SCLEROSIS
     Dosage: 14 MG, QD
     Route: 048
     Dates: start: 201808

REACTIONS (6)
  - Myocardial infarction [Fatal]
  - Syncope [Unknown]
  - Loss of consciousness [Unknown]
  - Ventricular fibrillation [Unknown]
  - Pulseless electrical activity [Unknown]
  - Cardiac arrest [Fatal]

NARRATIVE: CASE EVENT DATE: 20190604
